FAERS Safety Report 7829040-7 (Version None)
Quarter: 2011Q4

REPORT INFORMATION
  Report Type: 
  Country: None (occurrence: None)
  Receive Date: 20111020
  Receipt Date: 20111017
  Transmission Date: 20120403
  Serious: Yes (Other)
  Sender: FDA-Public Use
  Company Number: NL-ROXANE LABORATORIES, INC.-2011-RO-01487RO

PATIENT
  Age: 74 Year
  Sex: Male

DRUGS (2)
  1. MESALAMINE [Suspect]
     Indication: COLITIS ULCERATIVE
  2. PREDNISONE [Suspect]
     Indication: COLITIS ULCERATIVE

REACTIONS (1)
  - B-CELL LYMPHOMA [None]
